FAERS Safety Report 8420120 (Version 3)
Quarter: 2012Q4

REPORT INFORMATION
  Report Type: 
  Country: US (occurrence: US)
  Receive Date: 20111227
  Receipt Date: 20120918
  Transmission Date: 20130627
  Serious: Yes (Other)
  Sender: FDA-Public Use
  Company Number: PHEH2011US009243

PATIENT
  Age: 57 None
  Sex: Female
  Weight: 77.1 kg

DRUGS (1)
  1. GILENYA [Suspect]
     Indication: MULTIPLE SCLEROSIS
     Dosage: 0.5 mg, QD
     Route: 048
     Dates: start: 20110928, end: 201112

REACTIONS (14)
  - Spinal column stenosis [Unknown]
  - Limb discomfort [Not Recovered/Not Resolved]
  - Memory impairment [Unknown]
  - Abnormal sensation in eye [Unknown]
  - Drug hypersensitivity [Unknown]
  - Hypoaesthesia [Unknown]
  - Arthralgia [Unknown]
  - Hot flush [Unknown]
  - Malaise [Unknown]
  - Visual acuity reduced [Unknown]
  - Back pain [Unknown]
  - Headache [Unknown]
  - Vision blurred [Unknown]
  - Fatigue [Not Recovered/Not Resolved]
